FAERS Safety Report 5383076-7 (Version None)
Quarter: 2007Q3

REPORT INFORMATION
  Report Type: 
  Country: None (occurrence: None)
  Receive Date: 20070710
  Receipt Date: 20070629
  Transmission Date: 20080115
  Serious: Yes (Other)
  Sender: FDA-Public Use
  Company Number: JP-BRISTOL-MYERS SQUIBB COMPANY-13837240

PATIENT
  Age: 43 Year

DRUGS (3)
  1. MEVALOTIN [Suspect]
     Indication: HYPERLIPIDAEMIA
     Route: 048
     Dates: start: 20070320, end: 20070626
  2. BOUFUUTSUUSHOUSAN [Concomitant]
  3. FLOMOX [Concomitant]
     Dates: start: 20070601

REACTIONS (3)
  - LIVER DISORDER [None]
  - LIVER FUNCTION TEST ABNORMAL [None]
  - URINE ABNORMALITY [None]
